FAERS Safety Report 9770685 (Version 1)
Quarter: 2013Q4

REPORT INFORMATION
  Report Type: Spontaneous
  Country: FR (occurrence: FR)
  Receive Date: 20131218
  Receipt Date: 20131218
  Transmission Date: 20140711
  Serious: Yes (Hospitalization)
  Sender: FDA-Public Use
  Company Number: FR-GLAXOSMITHKLINE-B0952867A

PATIENT
  Age: 47 Year
  Sex: Female

DRUGS (4)
  1. ZOPHREN [Suspect]
     Indication: PRODUCT USED FOR UNKNOWN INDICATION
     Dosage: 16MG PER DAY
     Route: 048
     Dates: start: 20131024, end: 20131025
  2. TAXOTERE [Suspect]
     Indication: BREAST CANCER
     Dosage: 100MGM2 CYCLIC
     Route: 042
     Dates: start: 20131024, end: 20131024
  3. SOLUPRED [Suspect]
     Indication: PRODUCT USED FOR UNKNOWN INDICATION
     Dosage: 25MG TWICE PER DAY
     Route: 048
     Dates: start: 20131023, end: 20131025
  4. GRANOCYTE [Suspect]
     Indication: PRODUCT USED FOR UNKNOWN INDICATION
     Dosage: 34IU6 PER DAY
     Route: 058
     Dates: start: 20131025, end: 20131101

REACTIONS (5)
  - Hepatocellular injury [Recovering/Resolving]
  - Cholestasis [Recovering/Resolving]
  - Gastrointestinal disorder [Recovering/Resolving]
  - Asthenia [Recovering/Resolving]
  - Body temperature increased [Recovering/Resolving]
